FAERS Safety Report 5532702-8 (Version None)
Quarter: 2007Q4

REPORT INFORMATION
  Report Type: 
  Country: None (occurrence: None)
  Receive Date: 20071130
  Receipt Date: 20070827
  Transmission Date: 20080405
  Serious: No
  Sender: FDA-Public Use
  Company Number: WAES 0708USA04953

PATIENT
  Age: 59 Year
  Sex: Female

DRUGS (9)
  1. JANUVIA [Suspect]
     Indication: TYPE 2 DIABETES MELLITUS
     Dosage: 100 MG/DAILY/PO
     Route: 048
     Dates: start: 20070820
  2. AMARYL [Concomitant]
  3. DIOVAN [Concomitant]
  4. LEXAPRO [Concomitant]
  5. LIPITOR [Concomitant]
  6. PREVACID [Concomitant]
  7. SYNTHROID [Concomitant]
  8. FUROSEMIDE [Concomitant]
  9. METFORMIN HCL [Concomitant]

REACTIONS (2)
  - BLOOD GLUCOSE INCREASED [None]
  - DRUG INEFFECTIVE [None]
